FAERS Safety Report 18188471 (Version 1)
Quarter: 2020Q3

REPORT INFORMATION
  Report Type: Spontaneous
  Country: US (occurrence: US)
  Receive Date: 20200824
  Receipt Date: 20200824
  Transmission Date: 20201103
  Serious: No
  Sender: FDA-Public Use
  Company Number: US-BIOGEN-2015BI090603

PATIENT
  Age: 50 Year
  Sex: Female

DRUGS (3)
  1. AMBIEN [Concomitant]
     Active Substance: ZOLPIDEM TARTRATE
     Route: 065
  2. CALCIUM ACETATE. [Concomitant]
     Active Substance: CALCIUM ACETATE
     Route: 065
  3. TECFIDERA [Suspect]
     Active Substance: DIMETHYL FUMARATE
     Indication: MULTIPLE SCLEROSIS
     Route: 048
     Dates: start: 201306

REACTIONS (8)
  - Headache [Unknown]
  - Abdominal distension [Unknown]
  - Muscle tightness [Recovered/Resolved with Sequelae]
  - Diarrhoea [Unknown]
  - Food intolerance [Unknown]
  - Dysphagia [Unknown]
  - Gastroenteritis viral [Unknown]
  - Fatigue [Unknown]

NARRATIVE: CASE EVENT DATE: 201506
